FAERS Safety Report 6729723-6 (Version None)
Quarter: 2010Q2

REPORT INFORMATION
  Report Type: 
  Country: None (occurrence: None)
  Receive Date: 20100518
  Receipt Date: 20100507
  Transmission Date: 20101027
  Serious: Yes (Hospitalization)
  Sender: FDA-Public Use
  Company Number: PHHY2010MX29853

PATIENT
  Sex: Male

DRUGS (3)
  1. ZELMAC [Suspect]
     Indication: CONSTIPATION
     Dosage: 2 DF PER DAY
     Route: 048
  2. SENNOSIDE [Concomitant]
     Indication: CONSTIPATION
     Dosage: UNK
  3. BROXOL [Concomitant]
     Indication: COUGH
     Dosage: UNK

REACTIONS (3)
  - FALL [None]
  - HIP FRACTURE [None]
  - SURGERY [None]
